FAERS Safety Report 5474878-7 (Version None)
Quarter: 2007Q4

REPORT INFORMATION
  Report Type: 
  Country: None (occurrence: None)
  Receive Date: 20071002
  Receipt Date: 20070921
  Transmission Date: 20080405
  Serious: Yes (Death)
  Sender: FDA-Public Use
  Company Number: ZA-ROCHE-521144

PATIENT
  Age: 55 Year
  Sex: Male

DRUGS (6)
  1. DIAZEPAM [Suspect]
     Indication: PAIN
     Route: 065
     Dates: start: 20070715
  2. PANITUMUMAB [Suspect]
     Dosage: DOSAGE FORM: INFUSION. ADMINISTERED OVER 30 MIN.
     Route: 042
     Dates: start: 20070716, end: 20070801
  3. OXALIPLATIN [Suspect]
     Route: 065
     Dates: start: 20070716
  4. LEUCOVORIN [Concomitant]
     Dates: start: 20070716
  5. FLUOROURACIL [Concomitant]
     Dates: start: 20070716
  6. DEXTROPROPOXYPHENE [Concomitant]
     Indication: PAIN
     Dates: start: 20070715

REACTIONS (1)
  - CIRCULATORY COLLAPSE [None]
